FAERS Safety Report 5803853-5 (Version None)
Quarter: 2008Q3

REPORT INFORMATION
  Report Type: 
  Country: None (occurrence: None)
  Receive Date: 20080708
  Receipt Date: 20080613
  Transmission Date: 20090109
  Serious: No
  Sender: FDA-Public Use
  Company Number: US-BOEHRINGER INGELHEIM GMBH, GERMANY-2008-BP-09320BP

PATIENT
  Age: 75 Year
  Sex: Male

DRUGS (6)
  1. ZANTAC 75 [Suspect]
     Indication: DYSPEPSIA
     Route: 048
     Dates: start: 20080606
  2. HUMALOG [Concomitant]
  3. LANTUS [Concomitant]
  4. COZAAR [Concomitant]
  5. NORVASC [Concomitant]
  6. ROBITUSSIN WITH CODEINE [Concomitant]

REACTIONS (1)
  - HEADACHE [None]
